FAERS Safety Report 6981655-4 (Version None)
Quarter: 2010Q3

REPORT INFORMATION
  Report Type: 
  Country: None (occurrence: None)
  Receive Date: 20100914
  Receipt Date: 20090824
  Transmission Date: 20110219
  Serious: No
  Sender: FDA-Public Use
  Company Number: US-PFIZER INC-2009261783

PATIENT
  Sex: Male
  Weight: 83.9 kg

DRUGS (7)
  1. LYRICA [Suspect]
     Indication: DIABETIC NEUROPATHY
     Dosage: FREQUENCY: 2X/DAY,
     Route: 048
     Dates: start: 20080101
  2. LYRICA [Suspect]
     Dosage: 300 MG, 1X/DAY
     Dates: start: 20080101
  3. VICODIN [Concomitant]
  4. LIPITOR [Concomitant]
     Dosage: UNK
  5. TRICOR [Concomitant]
  6. PREVACID [Concomitant]
  7. INSULIN [Concomitant]

REACTIONS (2)
  - DEPRESSION [None]
  - DRUG PRESCRIBING ERROR [None]
